FAERS Safety Report 6590171-3 (Version None)
Quarter: 2010Q1

REPORT INFORMATION
  Report Type: 
  Country: None (occurrence: None)
  Receive Date: 20100219
  Receipt Date: 20100212
  Transmission Date: 20100710
  Serious: Yes (Hospitalization)
  Sender: FDA-Public Use
  Company Number: US-BRISTOL-MYERS SQUIBB COMPANY-14977680

PATIENT
  Age: 69 Year
  Sex: Male
  Weight: 79 kg

DRUGS (17)
  1. ERBITUX [Suspect]
     Indication: HEAD AND NECK CANCER
     Dosage: STARTED WITH 400 MG/M2, THEN REDUCED TO 250MG/M2
     Dates: start: 20091117, end: 20091124
  2. CISPLATIN [Suspect]
     Indication: HEAD AND NECK CANCER
     Dates: start: 20091124, end: 20091229
  3. ABRAXANE [Suspect]
     Indication: HEAD AND NECK CANCER
     Dates: start: 20091124, end: 20091229
  4. RADIATION THERAPY [Suspect]
  5. BENADRYL [Concomitant]
     Route: 048
     Dates: start: 20091209
  6. MAALOX [Concomitant]
     Route: 048
     Dates: start: 20091209
  7. LIDOCAINE [Concomitant]
     Route: 048
     Dates: start: 20091209
  8. NORMAL SALINE [Concomitant]
     Route: 042
     Dates: start: 20091212
  9. MICONAZOLE [Concomitant]
     Route: 048
     Dates: start: 20091229, end: 20100104
  10. GLUCOSE [Concomitant]
     Dates: start: 20091231, end: 20100112
  11. DOMEBORO [Concomitant]
     Dosage: SLN
     Route: 061
     Dates: start: 20100105, end: 20100112
  12. DIPHENHYDRAMINE [Concomitant]
     Dates: start: 20091130
  13. ACETAMINOPHEN [Concomitant]
     Route: 048
     Dates: start: 20091202
  14. ZOFRAN [Concomitant]
     Route: 048
     Dates: start: 20091202
  15. HYDROCODONE BITARTRATE [Concomitant]
     Route: 048
     Dates: start: 20091209
  16. BIOTENE ORALBALANCE [Concomitant]
     Route: 048
     Dates: start: 20091207
  17. CLINIMIX E [Concomitant]
     Dates: start: 20091231, end: 20100112

REACTIONS (4)
  - DECREASED APPETITE [None]
  - DEHYDRATION [None]
  - MUCOSAL INFLAMMATION [None]
  - ORAL PAIN [None]
